FAERS Safety Report 20587659 (Version 1)
Quarter: 2022Q1

REPORT INFORMATION
  Report Type: Report from Study
  Country: US (occurrence: US)
  Receive Date: 20220314
  Receipt Date: 20220314
  Transmission Date: 20220423
  Serious: No
  Sender: FDA-Public Use
  Company Number: US-NOVARTISTESTPH-NVSC2022US058477

PATIENT
  Sex: Female

DRUGS (1)
  1. XIIDRA [Suspect]
     Active Substance: LIFITEGRAST
     Indication: Product used for unknown indication
     Dosage: 5 % (PERCENT)
     Route: 047

REACTIONS (4)
  - Oropharyngeal pain [Recovering/Resolving]
  - Drug hypersensitivity [Recovering/Resolving]
  - Eye irritation [Recovering/Resolving]
  - Dysgeusia [Recovering/Resolving]
